FAERS Safety Report 7492493-0 (Version None)
Quarter: 2011Q2

REPORT INFORMATION
  Report Type: 
  Country: None (occurrence: None)
  Receive Date: 20110519
  Receipt Date: 20110517
  Transmission Date: 20111010
  Serious: Yes (Other)
  Sender: FDA-Public Use
  Company Number: AU-PFIZER INC-2011104892

PATIENT
  Sex: Male

DRUGS (4)
  1. FAMVIR [Suspect]
     Indication: HERPES ZOSTER
     Dosage: UNK
     Dates: end: 20110514
  2. LYRICA [Suspect]
     Dosage: 150 MG, UNK
  3. LYRICA [Suspect]
     Dosage: 225 MG, UNK
  4. LYRICA [Suspect]
     Indication: HYPOAESTHESIA
     Dosage: 75 MG, UNK

REACTIONS (3)
  - OEDEMA PERIPHERAL [None]
  - RASH MACULO-PAPULAR [None]
  - HERPES ZOSTER [None]
